FAERS Safety Report 5144333-2 (Version None)
Quarter: 2006Q4

REPORT INFORMATION
  Report Type: 
  Country: None (occurrence: None)
  Receive Date: 20061030
  Receipt Date: 20061016
  Transmission Date: 20070319
  Serious: Yes (Death)
  Sender: FDA-Public Use
  Company Number: US200610002750

PATIENT

DRUGS (2)
  1. ILETIN [Suspect]
     Indication: BLOOD GLUCOSE INCREASED
     Dosage: TRANSPLACENTAL
     Route: 064
  2. ILETIN [Suspect]
     Indication: BLOOD GLUCOSE INCREASED
     Dosage: TRANSPLACENTAL
     Route: 064

REACTIONS (3)
  - DRUG EXPOSURE DURING PREGNANCY [None]
  - INTRA-UTERINE DEATH [None]
  - STILLBIRTH [None]
